FAERS Safety Report 8904024 (Version 1)
Quarter: 2012Q4

REPORT INFORMATION
  Report Type: 
  Country: BE (occurrence: BE)
  Receive Date: 20121112
  Receipt Date: 20121112
  Transmission Date: 20130627
  Serious: Yes (Disabling, Other)
  Sender: FDA-Public Use
  Company Number: BE-MYLANLABS-2012S1022536

PATIENT
  Sex: Male
  Weight: 68 kg

DRUGS (4)
  1. SIMVASTATIN [Suspect]
     Indication: BLOOD CHOLESTEROL
     Route: 048
  2. EZETROL [Concomitant]
     Indication: BLOOD CHOLESTEROL
     Route: 048
  3. EZETIMIBE/SIMVASTATIN [Concomitant]
     Indication: BLOOD CHOLESTEROL
     Route: 048
  4. LIPITOR [Concomitant]
     Indication: BLOOD CHOLESTEROL
     Route: 048

REACTIONS (3)
  - Polyneuropathy [Unknown]
  - Myocardial infarction [Unknown]
  - Gait disturbance [Unknown]
